FAERS Safety Report 4746319-6 (Version None)
Quarter: 2005Q3

REPORT INFORMATION
  Report Type: 
  Country: None (occurrence: None)
  Receive Date: 20050817
  Receipt Date: 20050803
  Transmission Date: 20060218
  Serious: No
  Sender: FDA-Public Use
  Company Number: MW-BOEHRINGER INGELHEIM PHARMACEUTICALS, INC.-2005-DE-03016GD

PATIENT

DRUGS (1)
  1. TRIOMUNE [Suspect]
     Indication: HIV INFECTION
     Route: 048

REACTIONS (1)
  - NON-HODGKIN'S LYMPHOMA [None]
